FAERS Safety Report 5371286-4 (Version None)
Quarter: 2007Q2

REPORT INFORMATION
  Report Type: 
  Country: None (occurrence: None)
  Receive Date: 20070615
  Receipt Date: 20061204
  Transmission Date: 20071010
  Serious: Yes (Other)
  Sender: FDA-Public Use
  Company Number: 200618646US

PATIENT
  Age: 40 Year
  Sex: Male

DRUGS (4)
  1. LANTUS [Suspect]
     Indication: DIABETES MELLITUS NON-INSULIN-DEPENDENT
     Dosage: 40 U QD
     Dates: end: 20061001
  2. LANTUS [Suspect]
     Indication: DIABETES MELLITUS NON-INSULIN-DEPENDENT
     Dosage: 2 U QD
     Dates: start: 20061001
  3. STARLIX [Concomitant]
  4. METFORMIN HYDROCHLORIDE [Concomitant]

REACTIONS (2)
  - DISORIENTATION [None]
  - HYPOGLYCAEMIA [None]
